FAERS Safety Report 4918613-7 (Version None)
Quarter: 2006Q1

REPORT INFORMATION
  Report Type: 
  Country: None (occurrence: None)
  Receive Date: 20060216
  Receipt Date: 20060203
  Transmission Date: 20060701
  Serious: Yes (Other)
  Sender: FDA-Public Use
  Company Number: 2006018188

PATIENT
  Weight: 65.7716 kg

DRUGS (8)
  1. ZYVOX [Suspect]
     Indication: STAPHYLOCOCCAL INFECTION
  2. LIPITOR [Suspect]
     Indication: AORTIC DISORDER
     Dosage: 10 MG (10 MG, 1 IN 1 D); ORAL
     Route: 048
     Dates: start: 20050601, end: 20051001
  3. LIPITOR [Suspect]
     Indication: BLOOD CHOLESTEROL INCREASED
     Dosage: 10 MG (10 MG, 1 IN 1 D); ORAL
     Route: 048
     Dates: start: 20050601, end: 20051001
  4. SYNTHROID [Suspect]
     Indication: ILL-DEFINED DISORDER
     Dates: end: 20051001
  5. VITAMIN B (VITAMIN B) [Suspect]
     Indication: BLOOD CHOLESTEROL
  6. VITAMIN B (VITAMIN B) [Suspect]
     Indication: ILL-DEFINED DISORDER
  7. VITAMINS (VITAMINS) [Suspect]
     Indication: ILL-DEFINED DISORDER
     Dates: end: 20051001
  8. ALL OTHER NON-THERAPEUTIC PRODUCTS (ALL OTHER NON-THERAPEUTIC PRODUCTS [Suspect]
     Indication: ILL-DEFINED DISORDER

REACTIONS (15)
  - ABDOMINAL PAIN [None]
  - AORTIC ARTERIOSCLEROSIS [None]
  - BLOOD CHOLESTEROL INCREASED [None]
  - DIARRHOEA [None]
  - EYE INFECTION STAPHYLOCOCCAL [None]
  - FATIGUE [None]
  - INSOMNIA [None]
  - MYALGIA [None]
  - NAUSEA [None]
  - PRURITUS [None]
  - RASH [None]
  - ROSACEA [None]
  - STOMATITIS [None]
  - URTICARIA [None]
  - WEIGHT INCREASED [None]
